FAERS Safety Report 9015574 (Version 2)
Quarter: 2013Q1

REPORT INFORMATION
  Report Type: Spontaneous
  Country: US (occurrence: None)
  Receive Date: 20130102
  Receipt Date: 20130123
  Transmission Date: 20140127
  Serious: Yes (Other)
  Sender: FDA-Public Use
  Company Number: 2012P1067204

PATIENT
  Age: 68 Year
  Sex: Male
  Weight: 111.59 kg

DRUGS (6)
  1. COLLAGENASE SANTYL [Suspect]
     Indication: WOUND
     Route: 061
     Dates: start: 2008
  2. ACTOS [Suspect]
  3. GLYBURIDE [Suspect]
  4. SYNTHROID (LEVOTHYROXINE SODIUM) [Suspect]
  5. VANCOMYCIN [Suspect]
     Indication: STAPHYLOCOCCAL INFECTION
  6. TIMOLOL [Suspect]

REACTIONS (6)
  - Application site pain [None]
  - Wound [None]
  - Condition aggravated [None]
  - Staphylococcal infection [None]
  - Fall [None]
  - Renal disorder [None]
